FAERS Safety Report 9022871 (Version 1)
Quarter: 2013Q1

REPORT INFORMATION
  Report Type: Spontaneous
  Country: None (occurrence: US)
  Receive Date: 20130120
  Receipt Date: 20130120
  Transmission Date: 20140127
  Serious: No
  Sender: FDA-Public Use
  Company Number: US-ALLERGAN-1216892US

PATIENT
  Sex: Female

DRUGS (3)
  1. BOTOX COSMETIC [Suspect]
     Indication: SKIN WRINKLING
     Dosage: UNK, SINGLE
     Route: 030
     Dates: start: 201205, end: 201205
  2. BOTOX COSMETIC [Suspect]
     Indication: SKIN WRINKLING
  3. BOTOX COSMETIC [Suspect]
     Indication: SKIN WRINKLING

REACTIONS (11)
  - Rash pruritic [Recovered/Resolved]
  - Adverse event [Unknown]
  - Paraesthesia [Unknown]
  - Alopecia [Unknown]
  - Skin disorder [Unknown]
  - Nail growth abnormal [Unknown]
  - Insomnia [Unknown]
  - Activities of daily living impaired [Unknown]
  - Dysphagia [Unknown]
  - Headache [Unknown]
  - Skin disorder [Unknown]
